FAERS Safety Report 5813775-1 (Version None)
Quarter: 2008Q3

REPORT INFORMATION
  Report Type: 
  Country: None (occurrence: None)
  Receive Date: 20080717
  Receipt Date: 20080709
  Transmission Date: 20090109
  Serious: Yes (Other)
  Sender: FDA-Public Use
  Company Number: PHBS2008ES05081

PATIENT
  Age: 49 Year
  Sex: Male

DRUGS (2)
  1. BUDESONIDE, FORMOTEROL FUMARATE [Suspect]
  2. EBASTINE [Suspect]
     Route: 048

REACTIONS (9)
  - DYSPHAGIA [None]
  - DYSPHONIA [None]
  - ERYTHEMA [None]
  - INFLAMMATION [None]
  - PHARYNGITIS [None]
  - PRURITUS [None]
  - SKIN TEST POSITIVE [None]
  - THROAT IRRITATION [None]
  - TONGUE OEDEMA [None]
